FAERS Safety Report 22977602 (Version 2)
Quarter: 2023Q4

REPORT INFORMATION
  Report Type: Spontaneous
  Country: US (occurrence: US)
  Receive Date: 20230925
  Receipt Date: 20231003
  Transmission Date: 20240110
  Serious: Yes (Other)
  Sender: FDA-Public Use
  Company Number: US-PFIZER INC-PV202300158053

PATIENT
  Age: 51 Year
  Sex: Female

DRUGS (1)
  1. DOBUTAMINE HYDROCHLORIDE [Suspect]
     Active Substance: DOBUTAMINE HYDROCHLORIDE
     Dosage: 50 UG/KG/MIN

REACTIONS (4)
  - Ventricular hypokinesia [Recovered/Resolved]
  - Left ventricle outflow tract obstruction [Recovered/Resolved]
  - Mitral valve incompetence [Recovered/Resolved]
  - Off label use [Unknown]
